FAERS Safety Report 4371665-8 (Version None)
Quarter: 2004Q2

REPORT INFORMATION
  Report Type: 
  Country: None (occurrence: None)
  Receive Date: 20040602
  Receipt Date: 20040520
  Transmission Date: 20050107
  Serious: Yes (Other)
  Sender: FDA-Public Use
  Company Number: 2004034765

PATIENT
  Age: 72 Year
  Sex: Male

DRUGS (2)
  1. DIFLUCAN [Suspect]
     Indication: ENDOCARDITIS CANDIDA
  2. ALL OTHER THERAPEUTIC PRODUCTS (ALL OTHER THERAPEUTIC PRODUCTS) [Suspect]
     Indication: ILL-DEFINED DISORDER

REACTIONS (1)
  - CARDIOMYOPATHY [None]
